FAERS Safety Report 6114513-8 (Version None)
Quarter: 2009Q1

REPORT INFORMATION
  Report Type: 
  Country: None (occurrence: None)
  Receive Date: 20090313
  Receipt Date: 20090310
  Transmission Date: 20090719
  Serious: Yes (Life-Threatening, Hospitalization, Other)
  Sender: FDA-Public Use
  Company Number: DK-BRISTOL-MYERS SQUIBB COMPANY-14529200

PATIENT
  Age: 69 Year
  Sex: Male

DRUGS (3)
  1. APROVEL TABS [Suspect]
     Route: 048
  2. CENTYL K [Concomitant]
     Indication: HYPERTENSION
     Dosage: DOSAGE FORM=TABS. FORMULATION: TABLET
     Route: 048
     Dates: start: 20051117
  3. ENALAPRIL [Concomitant]
     Indication: HYPERTENSION
     Dosage: FORMULATION TABLET
     Route: 048
     Dates: start: 20060221

REACTIONS (4)
  - DIZZINESS [None]
  - FALL [None]
  - HEAD INJURY [None]
  - MULTIPLE FRACTURES [None]
